FAERS Safety Report 6141696-6 (Version None)
Quarter: 2009Q1

REPORT INFORMATION
  Report Type: 
  Country: None (occurrence: None)
  Receive Date: 20090331
  Receipt Date: 20090331
  Transmission Date: 20090719
  Serious: No
  Sender: FDA-Public Use
  Company Number: None

PATIENT
  Age: 50 Year
  Sex: Female
  Weight: 63.5036 kg

DRUGS (1)
  1. SIMVASTATIN [Suspect]
     Indication: BLOOD CHOLESTEROL INCREASED
     Dosage: 20MG TAB TEVA
     Dates: start: 20090311, end: 20090320

REACTIONS (6)
  - BONE PAIN [None]
  - CONSTIPATION [None]
  - FALL [None]
  - INSOMNIA [None]
  - PAIN [None]
  - SWELLING [None]
